FAERS Safety Report 9241849 (Version 2)
Quarter: 2013Q2

REPORT INFORMATION
  Report Type: Spontaneous
  Country: ZA (occurrence: ZA)
  Receive Date: 20130419
  Receipt Date: 20130508
  Transmission Date: 20140414
  Serious: No
  Sender: FDA-Public Use
  Company Number: ZA-ELI_LILLY_AND_COMPANY-ZA201304004512

PATIENT
  Age: 46 Year
  Sex: Male

DRUGS (1)
  1. CIALIS [Suspect]
     Indication: ERECTILE DYSFUNCTION
     Dosage: 20 MG, SINGLE

REACTIONS (5)
  - Visual impairment [Recovered/Resolved]
  - Penile haemorrhage [Recovered/Resolved]
  - Penile pain [Recovered/Resolved]
  - Ocular hyperaemia [Recovered/Resolved]
  - Erection increased [Recovered/Resolved]
